FAERS Safety Report 6016252-0 (Version None)
Quarter: 2008Q4

REPORT INFORMATION
  Report Type: 
  Country: None (occurrence: None)
  Receive Date: 20081218
  Receipt Date: 20081203
  Transmission Date: 20090506
  Serious: Yes (Hospitalization)
  Sender: FDA-Public Use
  Company Number: KV200800829

PATIENT
  Age: 61 Year
  Sex: Male
  Weight: 104.3 kg

DRUGS (1)
  1. ISOSORBIDE MONONITRATE [Suspect]
     Indication: CARDIAC DISORDER
     Dosage: 90 MG (1.5 TABLETS), QD, ORAL
     Route: 048
     Dates: start: 20080201

REACTIONS (2)
  - HEADACHE [None]
  - PRODUCT QUALITY ISSUE [None]
